FAERS Safety Report 11753449 (Version 1)
Quarter: 2015Q4

REPORT INFORMATION
  Report Type: Spontaneous
  Country: US (occurrence: US)
  Receive Date: 20151119
  Receipt Date: 20151119
  Transmission Date: 20160304
  Serious: Yes (Hospitalization, Other)
  Sender: FDA-Public Use
  Company Number: US-WEST-WARD PHARMACEUTICALS CORP.-US-H14001-15-01970

PATIENT
  Age: 37 Year
  Sex: Female

DRUGS (2)
  1. PROGESTERONE. [Suspect]
     Active Substance: PROGESTERONE
     Indication: IN VITRO FERTILISATION
     Route: 030
  2. SESAME OIL [Concomitant]
     Active Substance: SESAME OIL
     Indication: IN VITRO FERTILISATION
     Route: 065

REACTIONS (2)
  - Eosinophilic pneumonia acute [Recovered/Resolved]
  - Exposure during pregnancy [None]
